FAERS Safety Report 14859775 (Version 3)
Quarter: 2019Q3

REPORT INFORMATION
  Report Type: Spontaneous
  Country: US (occurrence: US)
  Receive Date: 20180508
  Receipt Date: 20190827
  Transmission Date: 20191004
  Serious: No
  Sender: FDA-Public Use
  Company Number: US-PFIZER INC-2018188067

PATIENT
  Age: 56 Year
  Sex: Male
  Weight: 106.6 kg

DRUGS (1)
  1. GABAPENTIN. [Suspect]
     Active Substance: GABAPENTIN
     Dosage: UNK

REACTIONS (3)
  - Paradoxical drug reaction [Unknown]
  - Drug hypersensitivity [Unknown]
  - Headache [Unknown]
